FAERS Safety Report 10003681 (Version 1)
Quarter: 2014Q1

REPORT INFORMATION
  Report Type: Spontaneous
  Country: US (occurrence: US)
  Receive Date: 20140312
  Receipt Date: 20140312
  Transmission Date: 20141002
  Serious: No
  Sender: FDA-Public Use
  Company Number: US-ABBVIE-13P-163-1117131-00

PATIENT
  Age: 30 Year
  Sex: Male
  Weight: 56.75 kg

DRUGS (3)
  1. DEPAKOTE [Suspect]
     Indication: BIPOLAR DISORDER
     Route: 048
     Dates: start: 2012, end: 20130706
  2. TRAZODONE [Concomitant]
     Indication: INSOMNIA
  3. SEROQUEL [Concomitant]
     Indication: AFFECTIVE DISORDER

REACTIONS (1)
  - Tremor [Not Recovered/Not Resolved]
